FAERS Safety Report 12889217 (Version 1)
Quarter: 2016Q4

REPORT INFORMATION
  Report Type: Spontaneous
  Country: JP (occurrence: JP)
  Receive Date: 20161027
  Receipt Date: 20161027
  Transmission Date: 20170207
  Serious: Yes (Hospitalization, Disabling, Other)
  Sender: FDA-Public Use
  Company Number: PHJP2016JP023450

PATIENT
  Age: 68 Year
  Sex: Male
  Weight: 68 kg

DRUGS (2)
  1. URSODEOXYCHOLIC ACID [Concomitant]
     Active Substance: URSODIOL
     Indication: HYPERBILIRUBINAEMIA
     Dosage: 100 MG, BID
     Route: 048
     Dates: start: 20111219, end: 20160804
  2. TASIGNA [Suspect]
     Active Substance: NILOTINIB
     Indication: CHRONIC MYELOID LEUKAEMIA
     Dosage: 300 MG, BID
     Route: 048
     Dates: start: 20111205, end: 20160804

REACTIONS (8)
  - Facial paralysis [Unknown]
  - Basilar artery occlusion [Unknown]
  - Brain stem infarction [Recovered/Resolved with Sequelae]
  - Facial nerve disorder [Unknown]
  - Dyslalia [Unknown]
  - Atrial fibrillation [Unknown]
  - Quadriplegia [Unknown]
  - Dysphonia [Unknown]

NARRATIVE: CASE EVENT DATE: 20160804
